FAERS Safety Report 8577283-X (Version None)
Quarter: 2012Q3

REPORT INFORMATION
  Report Type: 
  Country: None (occurrence: None)
  Receive Date: 20120807
  Receipt Date: 20120731
  Transmission Date: 20120928
  Serious: No
  Sender: FDA-Public Use
  Company Number: US-PFIZER INC-2012186315

PATIENT
  Age: 32 Year
  Sex: Female
  Weight: 58.957 kg

DRUGS (2)
  1. SERTRALINE HYDROCHLORIDE [Suspect]
     Indication: PANIC DISORDER
     Dosage: 50 MG, 1X/DAY
     Route: 048
  2. ATIVAN [Concomitant]
     Indication: ANXIETY
     Dosage: UNK

REACTIONS (3)
  - FEAR [None]
  - DIZZINESS [None]
  - FEELING ABNORMAL [None]
